FAERS Safety Report 12009321 (Version 1)
Quarter: 2016Q1

REPORT INFORMATION
  Report Type: Spontaneous
  Country: US (occurrence: None)
  Receive Date: 20160203
  Receipt Date: 20160203
  Transmission Date: 20160526
  Serious: No
  Sender: FDA-Public Use
  Company Number: None

PATIENT
  Age: 56 Year
  Sex: Female

DRUGS (28)
  1. ARMOUR THYRO TAB 120MG [Concomitant]
  2. CELEXA [Concomitant]
     Active Substance: CITALOPRAM HYDROBROMIDE
  3. DIGOXIN. [Concomitant]
     Active Substance: DIGOXIN
  4. FUROSEMIDE. [Concomitant]
     Active Substance: FUROSEMIDE
  5. KLONOPIN? [Concomitant]
  6. TRADJENTA [Concomitant]
     Active Substance: LINAGLIPTIN
  7. XYZAL [Concomitant]
     Active Substance: LEVOCETIRIZINE DIHYDROCHLORIDE
  8. LETAIRIS [Suspect]
     Active Substance: AMBRISENTAN
     Indication: PULMONARY ARTERIAL HYPERTENSION
     Route: 048
     Dates: start: 20130128
  9. LINZESS [Concomitant]
     Active Substance: LINACLOTIDE
  10. LOPRESSOR [Concomitant]
     Active Substance: METOPROLOL TARTRATE
  11. AMIODARONE [Concomitant]
     Active Substance: AMIODARONE
  12. METFORMIN [Concomitant]
     Active Substance: METFORMIN HYDROCHLORIDE
  13. ROPINIROLE. [Concomitant]
     Active Substance: ROPINIROLE
  14. SYMBICORT [Concomitant]
     Active Substance: BUDESONIDE\FORMOTEROL FUMARATE DIHYDRATE
  15. TRICOR [Concomitant]
     Active Substance: FENOFIBRATE
  16. CALCIUM [Concomitant]
     Active Substance: CALCIUM
  17. HYDROCHLOROT [Concomitant]
     Active Substance: HYDROCHLOROTHIAZIDE
  18. PROGESTERONE. [Concomitant]
     Active Substance: PROGESTERONE
  19. VENLAFAXINE [Concomitant]
     Active Substance: VENLAFAXINE HYDROCHLORIDE
  20. ADCIRCA [Suspect]
     Active Substance: TADALAFIL
     Indication: PULMONARY ARTERIAL HYPERTENSION
     Dosage: QHS
     Route: 048
     Dates: start: 20150806
  21. ASPIRIN. [Concomitant]
     Active Substance: ASPIRIN
  22. PREVACID? [Concomitant]
  23. SINGULAIR [Concomitant]
     Active Substance: MONTELUKAST SODIUM
  24. EFFEXOR [Concomitant]
     Active Substance: VENLAFAXINE HYDROCHLORIDE
  25. FOLIC ACID. [Concomitant]
     Active Substance: FOLIC ACID
  26. PROAIR HFA AER [Concomitant]
  27. SEROQUEL [Concomitant]
     Active Substance: QUETIAPINE FUMARATE
  28. SPIRONOLACT [Concomitant]

REACTIONS (2)
  - Drug dose omission [None]
  - Chest pain [None]

NARRATIVE: CASE EVENT DATE: 201601
